FAERS Safety Report 4791330-2 (Version None)
Quarter: 2005Q4

REPORT INFORMATION
  Report Type: 
  Country: None (occurrence: None)
  Receive Date: 20051007
  Receipt Date: 20050927
  Transmission Date: 20060501
  Serious: Yes (Death, Hospitalization, Other)
  Sender: FDA-Public Use
  Company Number: US-JNJFOC-20050906916

PATIENT
  Sex: Female
  Weight: 65.32 kg

DRUGS (52)
  1. REMICADE [Suspect]
     Dosage: Q 6-8 WEEKS.
     Route: 042
  2. REMICADE [Suspect]
     Dosage: Q 6-8 WEEKS.
     Route: 042
  3. REMICADE [Suspect]
     Dosage: Q 6-8 WEEKS.
     Route: 042
  4. REMICADE [Suspect]
     Dosage: Q 6-8 WEEKS.
     Route: 042
  5. REMICADE [Suspect]
     Dosage: Q 6-8 WEEKS.
     Route: 042
  6. REMICADE [Suspect]
     Dosage: Q 6-8 WEEKS.
     Route: 042
  7. REMICADE [Suspect]
     Dosage: Q 6-8 WEEKS.
     Route: 042
  8. REMICADE [Suspect]
     Dosage: Q 6-8 WEEKS.
     Route: 042
  9. REMICADE [Suspect]
     Indication: RHEUMATOID ARTHRITIS
     Dosage: Q 6-8 WEEKS.
     Route: 042
  10. HYDROMORPHONE [Concomitant]
     Route: 048
  11. PROTONIX [Concomitant]
  12. IMURAN [Concomitant]
  13. LEVOTHROID [Concomitant]
  14. FOLIC ACID [Concomitant]
  15. KLONOPIN [Concomitant]
     Route: 048
  16. COMPAZINE [Concomitant]
     Route: 048
  17. DOLOPHINE [Concomitant]
     Route: 048
  18. MIRAPEX [Concomitant]
     Route: 048
  19. DURAGESIC-100 [Concomitant]
     Route: 062
  20. ZOLOFT [Concomitant]
     Route: 048
  21. FOSAMAX [Concomitant]
     Route: 048
  22. TRAZODONE [Concomitant]
     Route: 048
  23. TRAZODONE [Concomitant]
     Route: 048
  24. CALCIUM GLUCONATE [Concomitant]
  25. MULTI-VITAMIN [Concomitant]
  26. MULTI-VITAMIN [Concomitant]
  27. MULTI-VITAMIN [Concomitant]
  28. MULTI-VITAMIN [Concomitant]
  29. MULTI-VITAMIN [Concomitant]
  30. MULTI-VITAMIN [Concomitant]
  31. MULTI-VITAMIN [Concomitant]
  32. MULTI-VITAMIN [Concomitant]
  33. STOOL SOFTENER [Concomitant]
  34. VITAMIN D [Concomitant]
     Route: 048
  35. DULCOLAX [Concomitant]
  36. PREMARIN [Concomitant]
  37. PROVERA [Concomitant]
  38. SORBITOL [Concomitant]
  39. PRILOSEC [Concomitant]
  40. ARAVA [Concomitant]
  41. ABILIFY [Concomitant]
  42. METROLOTION [Concomitant]
  43. GENGRAF [Concomitant]
  44. LACTULOSE [Concomitant]
     Dosage: 2 TSP UPTO 4 X DAILY
  45. NASAREL [Concomitant]
     Route: 045
  46. MOTRIN [Concomitant]
  47. DARVOCET-N 100 [Concomitant]
  48. DARVOCET-N 100 [Concomitant]
     Indication: PAIN
  49. ZYPREXA [Concomitant]
  50. LOMOTIL [Concomitant]
  51. LOMOTIL [Concomitant]
  52. SEROQUEL [Concomitant]

REACTIONS (44)
  - ABDOMINAL PAIN UPPER [None]
  - ANAEMIA [None]
  - ASTHENIA [None]
  - BLOOD POTASSIUM DECREASED [None]
  - BRONCHITIS [None]
  - CELLULITIS [None]
  - CERVICAL DYSPLASIA [None]
  - CERVICITIS [None]
  - CHEST PAIN [None]
  - CLOSTRIDIAL INFECTION [None]
  - CONDITION AGGRAVATED [None]
  - CONFUSIONAL STATE [None]
  - CONJUNCTIVITIS [None]
  - DEPRESSION [None]
  - DIARRHOEA [None]
  - DIZZINESS [None]
  - FALL [None]
  - FATIGUE [None]
  - FEBRILE NEUTROPENIA [None]
  - FUNGAL RASH [None]
  - GASTRITIS [None]
  - HALLUCINATION [None]
  - INSOMNIA [None]
  - LYMPHADENITIS [None]
  - MUSCLE STRAIN [None]
  - NASOPHARYNGITIS [None]
  - NAUSEA [None]
  - NON-HODGKIN'S LYMPHOMA [None]
  - ODYNOPHAGIA [None]
  - ONYCHOCLASIS [None]
  - ORAL CANDIDIASIS [None]
  - PNEUMONIA [None]
  - PYREXIA [None]
  - RESPIRATORY FAILURE [None]
  - RHINITIS [None]
  - SIALOADENITIS [None]
  - SKIN LACERATION [None]
  - THERAPEUTIC RESPONSE DECREASED [None]
  - TOOTH INFECTION [None]
  - URINARY TRACT INFECTION [None]
  - UROSEPSIS [None]
  - VOMITING [None]
  - WEIGHT DECREASED [None]
  - WRIST FRACTURE [None]
